FAERS Safety Report 5592405-0 (Version None)
Quarter: 2008Q1

REPORT INFORMATION
  Report Type: 
  Country: None (occurrence: None)
  Receive Date: 20080115
  Receipt Date: 20080103
  Transmission Date: 20080703
  Serious: Yes (Death)
  Sender: FDA-Public Use
  Company Number: US-PFIZER INC-2007092383

PATIENT
  Sex: Male
  Weight: 11 kg

DRUGS (2)
  1. ARGININE HYDROCHLORIDE [Suspect]
     Indication: BODY HEIGHT BELOW NORMAL
     Dosage: DAILY DOSE:60GRAM
     Route: 042
  2. GLUCAGON [Concomitant]
     Route: 030

REACTIONS (2)
  - ACCIDENTAL OVERDOSE [None]
  - BRAIN OEDEMA [None]
